FAERS Safety Report 6947193-X (Version None)
Quarter: 2010Q3

REPORT INFORMATION
  Report Type: 
  Country: None (occurrence: None)
  Receive Date: 20100827
  Receipt Date: 20091002
  Transmission Date: 20110219
  Serious: No
  Sender: FDA-Public Use
  Company Number: US-ABBOTT-09P-163-0595255-00

PATIENT
  Age: 63 Year
  Sex: Male
  Weight: 72.186 kg

DRUGS (9)
  1. NIASPAN [Suspect]
     Indication: BLOOD CHOLESTEROL INCREASED
     Dosage: AT NIGHT
     Dates: start: 20090820
  2. NIASPAN [Suspect]
     Indication: STENT PLACEMENT
  3. PLAVIX [Concomitant]
     Indication: PRODUCT USED FOR UNKNOWN INDICATION
     Route: 048
  4. METOPROLOL [Concomitant]
     Indication: PRODUCT USED FOR UNKNOWN INDICATION
     Route: 048
  5. ALTACE [Concomitant]
     Indication: PRODUCT USED FOR UNKNOWN INDICATION
     Route: 048
  6. PROTONIX [Concomitant]
     Indication: PRODUCT USED FOR UNKNOWN INDICATION
     Route: 048
  7. LIPITOR [Concomitant]
     Indication: PRODUCT USED FOR UNKNOWN INDICATION
     Route: 048
  8. ASPIRIN [Concomitant]
     Indication: PRODUCT USED FOR UNKNOWN INDICATION
     Route: 048
  9. DOXYCYCLINE [Concomitant]
     Indication: PRODUCT USED FOR UNKNOWN INDICATION
     Dosage: HAS NOT USED IN TWO WEEKS
     Route: 048

REACTIONS (11)
  - DIZZINESS POSTURAL [None]
  - DYSPNOEA [None]
  - FATIGUE [None]
  - FEELING HOT [None]
  - FLUSHING [None]
  - HEADACHE [None]
  - HYPERHIDROSIS [None]
  - INITIAL INSOMNIA [None]
  - MUSCLE SPASMS [None]
  - NAUSEA [None]
  - PAIN IN EXTREMITY [None]
